FAERS Safety Report 18363760 (Version 1)
Quarter: 2020Q4

REPORT INFORMATION
  Report Type: Report from Study
  Country: CA (occurrence: CA)
  Receive Date: 20201009
  Receipt Date: 20201009
  Transmission Date: 20210114
  Serious: Yes (Hospitalization)
  Sender: FDA-Public Use
  Company Number: CA-JNJFOC-20200521536

PATIENT
  Age: 54 Year
  Sex: Female

DRUGS (3)
  1. STELARA [Suspect]
     Active Substance: USTEKINUMAB
     Indication: RHEUMATOID ARTHRITIS
     Route: 058
  2. STELARA [Suspect]
     Active Substance: USTEKINUMAB
     Route: 058
  3. STELARA [Suspect]
     Active Substance: USTEKINUMAB
     Indication: CROHN^S DISEASE
     Dosage: ON 15-MAY-2020 RECEIVED 20TH INFUSION.
     Route: 058
     Dates: start: 20181108

REACTIONS (6)
  - Shoulder operation [Recovered/Resolved]
  - Product use in unapproved indication [Unknown]
  - Post procedural infection [Not Recovered/Not Resolved]
  - Hypotension [Unknown]
  - Off label use [Unknown]
  - Renal hypertension [Not Recovered/Not Resolved]

NARRATIVE: CASE EVENT DATE: 2020
